FAERS Safety Report 4661325-8 (Version None)
Quarter: 2005Q2

REPORT INFORMATION
  Report Type: 
  Country: None (occurrence: None)
  Receive Date: 20050511
  Receipt Date: 20050429
  Transmission Date: 20051028
  Serious: Yes (Life-Threatening)
  Sender: FDA-Public Use
  Company Number: 05P-167-0298982-00

PATIENT
  Age: 56 Year
  Sex: Female
  Weight: 76 kg

DRUGS (7)
  1. HUMIRA [Suspect]
     Indication: RHEUMATOID ARTHRITIS
     Dosage: 40 MG, 1 IN 2 WK, SUBCUTANEOUS
     Route: 058
     Dates: start: 20041015, end: 20041124
  2. METHOTREAXTE [Concomitant]
  3. INDOMETHACIN [Concomitant]
  4. RANITIDINE [Concomitant]
  5. AMITRIPTYLINE [Concomitant]
  6. ACETAMINOPHEN W/ CODEINE [Concomitant]
  7. INSULIN [Concomitant]

REACTIONS (1)
  - HYPOGLYCAEMIA [None]
